FAERS Safety Report 16046058 (Version 1)
Quarter: 2019Q1

REPORT INFORMATION
  Report Type: Spontaneous
  Country: CZ (occurrence: CZ)
  Receive Date: 20190307
  Receipt Date: 20190307
  Transmission Date: 20190418
  Serious: Yes (Hospitalization, Other)
  Sender: FDA-Public Use
  Company Number: CZ-BRISTOL-MYERS SQUIBB COMPANY-BMS-2019-022387

PATIENT
  Age: 33 Year
  Sex: Female

DRUGS (1)
  1. IPILIMUMAB [Suspect]
     Active Substance: IPILIMUMAB
     Indication: NEUROENDOCRINE CARCINOMA OF THE SKIN
     Dosage: 3 MG/KG, UNK
     Route: 065
     Dates: end: 201702

REACTIONS (4)
  - Product use in unapproved indication [Unknown]
  - Hypophysitis [Recovering/Resolving]
  - Enterocolitis haemorrhagic [Unknown]
  - Lymphadenitis [Unknown]
